FAERS Safety Report 5500262-3 (Version None)
Quarter: 2007Q4

REPORT INFORMATION
  Report Type: 
  Country: None (occurrence: None)
  Receive Date: 20071029
  Receipt Date: 20071019
  Transmission Date: 20080405
  Serious: Yes (Death, Hospitalization)
  Sender: FDA-Public Use
  Company Number: CZ-ELI_LILLY_AND_COMPANY-CZ200709006683

PATIENT
  Age: 74 Year
  Sex: Male

DRUGS (6)
  1. ZYPREXA [Suspect]
     Indication: PERSONALITY DISORDER
     Dosage: 15 MG, DAILY (1/D)
     Route: 048
     Dates: start: 20070104, end: 20070923
  2. ZYPREXA [Suspect]
     Dosage: 7.5 MG, UNKNOWN
     Route: 065
     Dates: end: 20070923
  3. BETALOC [Concomitant]
     Dosage: UNK, UNKNOWN
     Route: 048
  4. DIGOXIN [Concomitant]
     Dosage: UNK, UNKNOWN
     Route: 048
  5. PRESTARIUM [Concomitant]
     Indication: HYPERTENSION
     Dosage: UNK, UNKNOWN
     Route: 048
  6. AMISULPRIDE [Concomitant]
     Dosage: UNK, UNKNOWN
     Route: 065
     Dates: start: 20070924

REACTIONS (2)
  - MENTAL DISORDER [None]
  - PULMONARY EMBOLISM [None]
